FAERS Safety Report 8969189 (Version 5)
Quarter: 2013Q3

REPORT INFORMATION
  Report Type: Spontaneous
  Country: DE (occurrence: DE)
  Receive Date: 20121218
  Receipt Date: 20130702
  Transmission Date: 20140515
  Serious: Yes (Hospitalization)
  Sender: FDA-Public Use
  Company Number: DE-AMGEN-DEUSP2012080633

PATIENT
  Age: 75 Year
  Sex: Male
  Weight: 82 kg

DRUGS (12)
  1. ENBREL [Suspect]
     Indication: RHEUMATOID ARTHRITIS
     Dosage: 25 MG, 2X/WEEK
     Route: 058
     Dates: start: 20110102, end: 20121104
  2. PANTOPRAZOL [Concomitant]
     Dosage: UNK
  3. AMLODIPINE [Concomitant]
     Dosage: UNK
  4. PREDNISOLON                        /00016201/ [Concomitant]
     Dosage: 15 MG, 1X/DAY
  5. CANDESARTAN [Concomitant]
     Dosage: UNK
  6. SIMVASTATIN [Concomitant]
     Dosage: UNK
  7. CALCICARE D3 [Concomitant]
     Dosage: UNK
  8. TAMSULOSIN [Concomitant]
     Dosage: UNK
  9. DICLO DISPERS [Concomitant]
     Dosage: UNK
  10. IBUFLAM                            /00109201/ [Concomitant]
     Dosage: UNK
  11. ASS [Concomitant]
     Dosage: UNK
  12. TRAMAL [Concomitant]
     Dosage: UNK

REACTIONS (3)
  - Drug-induced liver injury [Recovered/Resolved]
  - Alveolitis [Unknown]
  - Swelling face [Unknown]
